FAERS Safety Report 12314448 (Version 1)
Quarter: 2016Q2

REPORT INFORMATION
  Report Type: Spontaneous
  Country: GB (occurrence: GB)
  Receive Date: 20160428
  Receipt Date: 20160428
  Transmission Date: 20160815
  Serious: Yes (Hospitalization, Other)
  Sender: FDA-Public Use
  Company Number: GB-GLAXOSMITHKLINE-GB2016059039

PATIENT
  Age: 71 Year
  Sex: Male

DRUGS (15)
  1. CEFUROXIME. [Suspect]
     Active Substance: CEFUROXIME
     Indication: DEVICE RELATED SEPSIS
     Dosage: UNK
     Route: 065
  2. ARANESP [Concomitant]
     Active Substance: DARBEPOETIN ALFA
     Dosage: 80MICROGRAMS/0.4ML
  3. FOLIC ACID. [Concomitant]
     Active Substance: FOLIC ACID
     Dosage: 5 MG, QD
  4. TAZOCIN [Concomitant]
     Active Substance: PIPERACILLIN SODIUM\TAZOBACTAM SODIUM
     Dosage: 4.5 G, UNK
     Route: 042
     Dates: start: 20160211, end: 20160212
  5. VENOFER [Concomitant]
     Active Substance: IRON SUCROSE
     Dosage: 100MG/5ML
  6. ATORVASTATIN [Concomitant]
     Active Substance: ATORVASTATIN
     Dosage: AT NIGHT
  7. LANSOPRAZOLE. [Concomitant]
     Active Substance: LANSOPRAZOLE
     Dosage: 30 MG, UNK
  8. VANCOMYCIN [Concomitant]
     Active Substance: VANCOMYCIN
     Indication: DEVICE RELATED SEPSIS
     Dosage: 1.5 G, UNK
     Route: 042
     Dates: start: 20160211, end: 20160218
  9. GENTAMICIN. [Concomitant]
     Active Substance: GENTAMICIN
     Dosage: 80MG/2ML
     Route: 042
     Dates: start: 20160211, end: 20160219
  10. HAELAN [Concomitant]
     Dosage: 4MICROGRAMS/SQUARE CM
  11. WARFARIN [Concomitant]
     Active Substance: WARFARIN
     Indication: ATRIAL FIBRILLATION
     Dosage: 1 MG, UNK
  12. CETIRIZINE [Concomitant]
     Active Substance: CETIRIZINE HYDROCHLORIDE
     Dosage: 10 MG, UNK
  13. BISOPROLOL [Concomitant]
     Active Substance: BISOPROLOL
     Dosage: 2.5 MG, UNK
  14. DIGOXIN. [Concomitant]
     Active Substance: DIGOXIN
     Dosage: 125 ?G, UNK
  15. DIPROBASE [Concomitant]
     Active Substance: CHLOROCRESOL
     Dosage: UNK

REACTIONS (1)
  - Neutropenia [Unknown]
